FAERS Safety Report 6213981-0 (Version None)
Quarter: 2009Q2

REPORT INFORMATION
  Report Type: 
  Country: None (occurrence: None)
  Receive Date: 20090601
  Receipt Date: 20090601
  Transmission Date: 20091009
  Serious: Yes (Other)
  Sender: FDA-Public Use
  Company Number: None

PATIENT
  Age: 43 Year
  Sex: Male
  Weight: 85.2762 kg

DRUGS (4)
  1. CIALIS [Suspect]
     Indication: ERECTILE DYSFUNCTION
     Dosage: ONE PILL ONCE PO 2 OTHER X IN PRIOR MONTH
     Route: 048
     Dates: start: 20080703, end: 20080703
  2. ATENOLOL-CHLORTHAL [Concomitant]
  3. PEPCID AC [Concomitant]
  4. TYLENOL MIGRAINE [Concomitant]

REACTIONS (5)
  - DEAFNESS NEUROSENSORY [None]
  - DIZZINESS [None]
  - EAR DISCOMFORT [None]
  - IMPAIRED WORK ABILITY [None]
  - TINNITUS [None]
